FAERS Safety Report 22647895 (Version 1)
Quarter: 2023Q2

REPORT INFORMATION
  Report Type: Spontaneous
  Country: FR (occurrence: FR)
  Receive Date: 20230628
  Receipt Date: 20230628
  Transmission Date: 20230722
  Serious: Yes (Hospitalization)
  Sender: FDA-Public Use
  Company Number: FR-SANOFI-01665093

PATIENT
  Age: 49 Year
  Sex: Female

DRUGS (5)
  1. AUBAGIO [Suspect]
     Active Substance: TERIFLUNOMIDE
     Indication: Multiple sclerosis
     Dosage: UNK
     Dates: start: 2020
  2. MELATONIN [Suspect]
     Active Substance: MELATONIN
     Dosage: UNK
  3. TRIMEBUTINE [Concomitant]
     Active Substance: TRIMEBUTINE
     Dosage: UNK
  4. VENTOLIN [Concomitant]
     Active Substance: ALBUTEROL SULFATE
     Dosage: UNK
  5. LINOVERA [Concomitant]
     Dosage: UNK

REACTIONS (10)
  - Asthma [Unknown]
  - Dyspnoea [Unknown]
  - Abdominal pain [Unknown]
  - Fatigue [Unknown]
  - Rest regimen [Unknown]
  - Muscular weakness [Unknown]
  - Hypertension [Unknown]
  - Muscle spasms [Recovered/Resolved]
  - Hyperhidrosis [Recovered/Resolved]
  - Alopecia [Recovered/Resolved]

NARRATIVE: CASE EVENT DATE: 20200101
